FAERS Safety Report 14009696 (Version 4)
Quarter: 2018Q1

REPORT INFORMATION
  Report Type: Spontaneous
  Country: NL (occurrence: NL)
  Receive Date: 20170925
  Receipt Date: 20180126
  Transmission Date: 20180508
  Serious: Yes (Life-Threatening)
  Sender: FDA-Public Use
  Company Number: NL-PFIZER INC-2017384024

PATIENT
  Age: 54 Year
  Sex: Female
  Weight: 62 kg

DRUGS (4)
  1. ZOLOFT [Suspect]
     Active Substance: SERTRALINE HYDROCHLORIDE
     Indication: DEPRESSION
     Dosage: 50 MG, 1X/DAY
     Route: 048
     Dates: start: 20020918
  2. NUTRIDRINK COMPACT [Concomitant]
     Dosage: 1 DF, UNK
     Route: 048
  3. LORAZEPAM. [Concomitant]
     Active Substance: LORAZEPAM
     Indication: INSOMNIA
     Dosage: 2 MG AND 1 MG, 1X/DAY
     Route: 048
  4. DILTIAZEM. [Concomitant]
     Active Substance: DILTIAZEM
     Dosage: 1 DF, UNK
     Route: 054

REACTIONS (10)
  - Antidepressant drug level decreased [Unknown]
  - Withdrawal syndrome [Unknown]
  - Anxiety [Unknown]
  - Drug ineffective [Recovering/Resolving]
  - Nausea [Unknown]
  - Crying [Unknown]
  - Weight decreased [Recovering/Resolving]
  - Decreased appetite [Recovering/Resolving]
  - Product quality issue [Recovering/Resolving]
  - Chills [Recovering/Resolving]
